FAERS Safety Report 4710961-9 (Version None)
Quarter: 2005Q2

REPORT INFORMATION
  Report Type: 
  Country: None (occurrence: None)
  Receive Date: 20050629
  Receipt Date: 20050316
  Transmission Date: 20051028
  Serious: No
  Sender: FDA-Public Use
  Company Number: 04P-163-0281327-00

PATIENT
  Age: 51 Year
  Sex: Female
  Weight: 56.6996 kg

DRUGS (9)
  1. HUMIRA [Suspect]
     Indication: RHEUMATOID ARTHRITIS
     Dosage: 40 MG, 1 IN 2 WK, SUBCUTANEOUS
     Route: 058
     Dates: start: 20030801, end: 20041101
  2. HUMIRA [Suspect]
     Indication: RHEUMATOID ARTHRITIS
     Dosage: 40 MG, 1 IN 2 WK, SUBCUTANEOUS
     Route: 058
     Dates: start: 20050104
  3. METHOTREXATE [Concomitant]
  4. VICODIN [Concomitant]
  5. GERITOL [Concomitant]
  6. CELECOXIB [Concomitant]
  7. ASPIRIN [Concomitant]
  8. FIBER CHOICE [Concomitant]
  9. ESOMEPRAZOLE [Concomitant]

REACTIONS (4)
  - HERPES SIMPLEX [None]
  - PHARYNGITIS [None]
  - SINUSITIS [None]
  - THYROID ADENOMA [None]
